FAERS Safety Report 5961338-X (Version None)
Quarter: 2008Q4

REPORT INFORMATION
  Report Type: 
  Country: None (occurrence: None)
  Receive Date: 20081119
  Receipt Date: 20080214
  Transmission Date: 20090506
  Serious: No
  Sender: FDA-Public Use
  Company Number: 2008S1002720

PATIENT
  Age: 50 Year
  Sex: Female
  Weight: 54.4316 kg

DRUGS (3)
  1. ETODOLAC [Suspect]
     Indication: INFLAMMATION
     Dosage: 200 MG;TWICE A DAY; ORAL
     Route: 048
     Dates: start: 20071201
  2. DOLOBID [Concomitant]
  3. LODINE [Concomitant]

REACTIONS (1)
  - URTICARIA [None]
